FAERS Safety Report 14318736 (Version 2)
Quarter: 2018Q1

REPORT INFORMATION
  Report Type: Report from Study
  Country: BR (occurrence: BR)
  Receive Date: 20171222
  Receipt Date: 20180320
  Transmission Date: 20180509
  Serious: Yes (Death, Other)
  Sender: FDA-Public Use
  Company Number: BR-SA-2017SA255947

PATIENT
  Age: 84 Year
  Sex: Female

DRUGS (4)
  1. LANTUS SOLOSTAR [Suspect]
     Active Substance: INSULIN GLARGINE
     Indication: TYPE 2 DIABETES MELLITUS
     Dosage: EVERY DAY, IN THE MORNING, IN FASTING
     Route: 051
     Dates: start: 201603
  2. SOLOSTAR [Suspect]
     Active Substance: DEVICE
     Indication: TYPE 2 DIABETES MELLITUS
     Dosage: EVERY DAY, IN THE MORNING, IN FASTING
     Dates: start: 201603
  3. PURAN [Suspect]
     Active Substance: LEVOTHYROXINE SODIUM
     Indication: THYROID DISORDER
     Route: 065
  4. ATENSINA [Concomitant]
     Active Substance: CLONIDINE
     Route: 065

REACTIONS (8)
  - Death [Fatal]
  - Femur fracture [Unknown]
  - Blood glucose increased [Unknown]
  - Pain in extremity [Unknown]
  - Drug ineffective [Unknown]
  - Condition aggravated [Unknown]
  - Product use issue [Unknown]
  - Gait disturbance [Unknown]

NARRATIVE: CASE EVENT DATE: 20171209
